FAERS Safety Report 13641758 (Version 1)
Quarter: 2017Q2

REPORT INFORMATION
  Report Type: Spontaneous
  Country: US (occurrence: US)
  Receive Date: 20170609
  Receipt Date: 20170609
  Transmission Date: 20170830
  Serious: No
  Sender: FDA-Public Use
  Company Number: None

PATIENT
  Age: 67 Year
  Sex: Female

DRUGS (1)
  1. TACROLIMUS CAP 1MG DR. REDDY^S LABORATORIES [Suspect]
     Active Substance: TACROLIMUS

REACTIONS (2)
  - Drug level fluctuating [None]
  - Product substitution issue [None]

NARRATIVE: CASE EVENT DATE: 20170315
